FAERS Safety Report 6781700-5 (Version None)
Quarter: 2010Q2

REPORT INFORMATION
  Report Type: 
  Country: None (occurrence: None)
  Receive Date: 20100621
  Receipt Date: 20100610
  Transmission Date: 20101027
  Serious: Yes (Death, Hospitalization)
  Sender: FDA-Public Use
  Company Number: SE-JNJFOC-20100603725

PATIENT
  Age: 63 Year
  Sex: Male

DRUGS (14)
  1. REMICADE [Suspect]
     Indication: PSORIATIC ARTHROPATHY
     Route: 042
  2. KETOPROFEN [Concomitant]
  3. FELODIPINE [Concomitant]
  4. FELODIPINE [Concomitant]
  5. CYCLOSPORINE [Concomitant]
  6. ALVEDON [Concomitant]
  7. METOJECT [Concomitant]
  8. OPTINATE SEPTIMUM [Concomitant]
  9. OMEPRAZOLE [Concomitant]
  10. FOLACIN [Concomitant]
  11. IMPUGAN [Concomitant]
  12. PREDNISOLONE [Concomitant]
  13. CALCICHEW-D3 [Concomitant]
     Dosage: 500 MG/400 IE
  14. TIPAROL [Concomitant]

REACTIONS (3)
  - ARTERIOSCLEROSIS CORONARY ARTERY [None]
  - ATRIOVENTRICULAR BLOCK COMPLETE [None]
  - MYOCARDIAL INFARCTION [None]
